FAERS Safety Report 24328338 (Version 1)
Quarter: 2024Q3

REPORT INFORMATION
  Report Type: Report from Study
  Country: JP (occurrence: JP)
  Receive Date: 20240917
  Receipt Date: 20240917
  Transmission Date: 20241017
  Serious: Yes (Death)
  Sender: AKEBIA THERAPEUTICS
  Company Number: JP-MTPC-MTPC2022-0033251

PATIENT
  Age: 84 Year
  Sex: Female
  Weight: 48.3 kg

DRUGS (14)
  1. VADADUSTAT [Suspect]
     Active Substance: VADADUSTAT
     Indication: Nephrogenic anaemia
     Dosage: 300 MILLIGRAM, QD
     Route: 048
     Dates: start: 20220401, end: 20220511
  2. VADADUSTAT [Suspect]
     Active Substance: VADADUSTAT
     Dosage: 450 MILLIGRAM, QD
     Route: 048
     Dates: start: 20220512, end: 20220624
  3. VADADUSTAT [Suspect]
     Active Substance: VADADUSTAT
     Dosage: 600 MILLIGRAM, QD
     Route: 048
     Dates: start: 20220625, end: 20230205
  4. QUETIAPINE [Suspect]
     Active Substance: QUETIAPINE
     Indication: Illness
     Dosage: 50 MILLIGRAM, QD
     Route: 048
     Dates: end: 20220720
  5. NEXIUM [Concomitant]
     Active Substance: ESOMEPRAZOLE MAGNESIUM
     Indication: Prophylaxis
     Dosage: 10 MILLIGRAM, QD
     Route: 048
     Dates: start: 20220512, end: 20230205
  6. NEXIUM [Concomitant]
     Active Substance: ESOMEPRAZOLE MAGNESIUM
     Dosage: 10 MILLIGRAM, QD
     Route: 048
     Dates: start: 20230310
  7. AMLODIPINE [Concomitant]
     Active Substance: AMLODIPINE BESYLATE
     Indication: Product used for unknown indication
     Dosage: 5 MILLIGRAM, QD
     Route: 048
     Dates: end: 20230206
  8. URSODIOL [Concomitant]
     Active Substance: URSODIOL
     Indication: Illness
     Dosage: 300 MILLIGRAM, QD
     Route: 048
     Dates: end: 20230205
  9. DONEPEZIL HYDROCHLORIDE [Concomitant]
     Active Substance: DONEPEZIL HYDROCHLORIDE
     Indication: Illness
     Dosage: 5 MILLIGRAM, QD
     Route: 048
     Dates: end: 20230205
  10. RABEPRAZOLE SODIUM [Concomitant]
     Active Substance: RABEPRAZOLE SODIUM
     Indication: Prophylaxis
     Dosage: 10 MILLIGRAM, QD
     Route: 048
     Dates: end: 20220511
  11. LUNESTA [Concomitant]
     Active Substance: ESZOPICLONE
     Indication: Illness
     Dosage: 1 MILLIGRAM, QD
     Route: 048
     Dates: end: 20230205
  12. MINOCYCLINE HYDROCHLORIDE [Concomitant]
     Active Substance: MINOCYCLINE HYDROCHLORIDE
     Indication: Illness
     Dosage: 200 MILLIGRAM, QD
     Route: 048
     Dates: end: 20230205
  13. EVOCALCET [Concomitant]
     Active Substance: EVOCALCET
     Indication: Illness
     Dosage: 1 MILLIGRAM, QD
     Route: 048
     Dates: end: 20220701
  14. MAXACALCITOL [Concomitant]
     Active Substance: MAXACALCITOL
     Indication: Illness
     Dosage: UNK, PRN
     Route: 051

REACTIONS (2)
  - Death [Fatal]
  - Hypoglycaemia [Recovered/Resolved]

NARRATIVE: CASE EVENT DATE: 20220721
